FAERS Safety Report 9749361 (Version 1)
Quarter: 2013Q4

REPORT INFORMATION
  Report Type: Spontaneous
  Country: GB (occurrence: None)
  Receive Date: 20131209
  Receipt Date: 20131209
  Transmission Date: 20140711
  Serious: Yes (Life-Threatening, Hospitalization, Other)
  Sender: FDA-Public Use
  Company Number: 2055248

PATIENT
  Age: 53 Year
  Sex: Female
  Weight: 55.7 kg

DRUGS (6)
  1. IRINOTECAN HYDROCHLORIDE [Suspect]
     Indication: COLORECTAL CANCER METASTATIC
     Dosage: 290 MG MILLIGRAM(S), 1 WEEK, INTRAVENOUS (NOT OTHERWISE SPECIFIED)?(1 WEEK)
     Route: 042
     Dates: start: 20130516
  2. FLUOROURACIL [Suspect]
     Indication: COLORECTAL CANCER METASTATIC
     Dosage: 625 MG MILLIGRAM(S), 1 WEEK, INTRAVENOUS BOLUS
     Route: 040
     Dates: start: 20130516
  3. BEVACIZUMAB [Suspect]
     Indication: COLORECTAL CANCER METASTATIC
     Dosage: 275 MG MILLIGRAM(S), 1 WEEK, INTRAVENOUS (NOT OTHERWISE SPECIFIED)
     Route: 042
     Dates: start: 20130516
  4. (ZOPICLONE) [Concomitant]
  5. (DIAZEPAM) [Concomitant]
  6. CITALOPRAM [Concomitant]

REACTIONS (5)
  - Suicide attempt [None]
  - Cervical vertebral fracture [None]
  - Hallucination [None]
  - Malaise [None]
  - Hallucination [None]
